FAERS Safety Report 4471099-1 (Version None)
Quarter: 2004Q4

REPORT INFORMATION
  Report Type: 
  Country: None (occurrence: None)
  Receive Date: 20041011
  Receipt Date: 20040928
  Transmission Date: 20050328
  Serious: Yes (Other)
  Sender: FDA-Public Use
  Company Number: PHBS2004IT12876

PATIENT
  Age: 63 Year
  Sex: Female

DRUGS (4)
  1. PAMIDRONATE DISODIUM [Suspect]
     Indication: METASTASES TO BONE
     Dosage: 90 MG OVER 2 HOURS
     Route: 042
  2. PROLEUKIN [Concomitant]
     Dosage: 4.5 M IU/DAY, DAY 1-5
     Route: 058
  3. IFN ALPHA [Concomitant]
     Dosage: 3 M IU/DAY, DAY 1,3,5
     Route: 030
  4. MEDROXYPROGESTERONE ACETATE [Concomitant]
     Dosage: 1000 MG/D
     Route: 048

REACTIONS (7)
  - ASTHENIA [None]
  - ATRIAL FIBRILLATION [None]
  - HEPATOTOXICITY [None]
  - HYPERTENSION [None]
  - HYPOCALCAEMIA [None]
  - MALIGNANT NEOPLASM PROGRESSION [None]
  - PYREXIA [None]
